FAERS Safety Report 12933869 (Version 2)
Quarter: 2017Q2

REPORT INFORMATION
  Report Type: Report from Study
  Country: US (occurrence: US)
  Receive Date: 20161111
  Receipt Date: 20170417
  Transmission Date: 20170830
  Serious: Yes (Hospitalization)
  Sender: FDA-Public Use
  Company Number: US-JNJFOC-20160308656

PATIENT
  Age: 74 Year
  Sex: Female

DRUGS (7)
  1. IMBRUVICA [Suspect]
     Active Substance: IBRUTINIB
     Indication: CHRONIC LYMPHOCYTIC LEUKAEMIA
     Route: 048
     Dates: start: 20140319
  2. ALLOPURINOL. [Concomitant]
     Active Substance: ALLOPURINOL
  3. PLAVIX [Concomitant]
     Active Substance: CLOPIDOGREL BISULFATE
  4. POTASSIUM [Concomitant]
     Active Substance: POTASSIUM
  5. MACROBID [Concomitant]
     Active Substance: NITROFURANTOIN\NITROFURANTOIN MONOHYDRATE
  6. ACYCLOVIR. [Concomitant]
     Active Substance: ACYCLOVIR
  7. IMBRUVICA [Suspect]
     Active Substance: IBRUTINIB
     Indication: CHRONIC LYMPHOCYTIC LEUKAEMIA
     Route: 048
     Dates: start: 20160304, end: 2017

REACTIONS (7)
  - Contusion [Unknown]
  - Off label use [Not Recovered/Not Resolved]
  - Kidney infection [Not Recovered/Not Resolved]
  - Product use issue [Not Recovered/Not Resolved]
  - Cystitis [Not Recovered/Not Resolved]
  - Laboratory test abnormal [Unknown]
  - Haemorrhage [Unknown]

NARRATIVE: CASE EVENT DATE: 20140319
